FAERS Safety Report 7399172-9 (Version None)
Quarter: 2011Q2

REPORT INFORMATION
  Report Type: 
  Country: None (occurrence: None)
  Receive Date: 20110407
  Receipt Date: 20110328
  Transmission Date: 20111010
  Serious: Yes (Hospitalization, Other)
  Sender: FDA-Public Use
  Company Number: AU-ELI_LILLY_AND_COMPANY-AU201103008582

PATIENT
  Age: 20 Year
  Sex: Male

DRUGS (1)
  1. EFFIENT [Suspect]
     Dosage: UNK, UNKNOWN
     Route: 065

REACTIONS (2)
  - RECTAL HAEMORRHAGE [None]
  - PERCUTANEOUS CORONARY INTERVENTION [None]
